FAERS Safety Report 7389474-4 (Version None)
Quarter: 2011Q2

REPORT INFORMATION
  Report Type: 
  Country: None (occurrence: None)
  Receive Date: 20110401
  Receipt Date: 20110331
  Transmission Date: 20111010
  Serious: Yes (Death, Hospitalization, Other)
  Sender: FDA-Public Use
  Company Number: JP-PFIZER INC-2010156200

PATIENT
  Age: 76 Year
  Sex: Male
  Weight: 54 kg

DRUGS (11)
  1. OXINORM [Concomitant]
     Dosage: 5 MG, AS NEEDED
     Route: 048
  2. ALLOPURINOL [Concomitant]
     Dosage: 100 MG, 1X/DAY
     Route: 048
  3. LOXONIN [Concomitant]
     Dosage: 60 MG, 3X/DAY
     Route: 048
  4. CEREKINON [Concomitant]
     Dosage: 100 MG, 3X/DAY
     Route: 048
  5. MAGNESIUM OXIDE [Concomitant]
     Dosage: 1.5 G, 3X/DAY
     Route: 048
  6. KARY UNI [Concomitant]
     Dosage: UNK
     Route: 047
  7. POLITOSE [Concomitant]
     Dosage: UNK
     Route: 048
  8. FERROUS CITRATE [Concomitant]
     Dosage: 50 MG, 2X/DAY
     Route: 048
  9. FOIPAN [Concomitant]
     Dosage: 100 MG, 3X/DAY
     Route: 048
  10. OXYCONTIN [Concomitant]
     Dosage: 10 MG, 2X/DAY
     Route: 048
  11. LYRICA [Suspect]
     Indication: PAIN
     Dosage: 75 MG, 1X/DAY
     Route: 048
     Dates: start: 20101118, end: 20101203

REACTIONS (2)
  - LARGE INTESTINE CARCINOMA [None]
  - RHABDOMYOLYSIS [None]
